FAERS Safety Report 25613453 (Version 1)
Quarter: 2025Q3

REPORT INFORMATION
  Report Type: Spontaneous
  Country: CA (occurrence: None)
  Receive Date: 20250728
  Receipt Date: 20250728
  Transmission Date: 20251020
  Serious: Yes (Other)
  Sender: FDA-CTU
  Company Number: None

PATIENT
  Age: 41 Year
  Sex: Male
  Weight: 69 kg

DRUGS (7)
  1. SERTRALINE HYDROCHLORIDE [Suspect]
     Active Substance: SERTRALINE HYDROCHLORIDE
     Indication: Anxiety
     Route: 048
     Dates: start: 20250723, end: 20250724
  2. SERTRALINE HYDROCHLORIDE [Suspect]
     Active Substance: SERTRALINE HYDROCHLORIDE
     Indication: Irritable bowel syndrome
  3. magnesium critrate [Concomitant]
  4. pryidoxal5phosphate [Concomitant]
  5. ZINC CITRATE [Concomitant]
     Active Substance: ZINC CITRATE
  6. DIETARY SUPPLEMENT [Concomitant]
     Active Substance: DIETARY SUPPLEMENT
  7. HERBALS\WITHANIA SOMNIFERA ROOT [Concomitant]
     Active Substance: HERBALS\WITHANIA SOMNIFERA ROOT

REACTIONS (5)
  - Nausea [None]
  - Blood sodium abnormal [None]
  - Insomnia [None]
  - Palpitations [None]
  - Angina pectoris [None]

NARRATIVE: CASE EVENT DATE: 20250723
